FAERS Safety Report 15135997 (Version 2)
Quarter: 2018Q3

REPORT INFORMATION
  Report Type: Spontaneous
  Country: IT (occurrence: IT)
  Receive Date: 20180712
  Receipt Date: 20180720
  Transmission Date: 20181010
  Serious: Yes (Death)
  Sender: FDA-Public Use
  Company Number: IT-ASTRAZENECA-2018SE88007

PATIENT
  Age: 75 Year
  Sex: Male

DRUGS (2)
  1. TAGRISSO [Suspect]
     Active Substance: OSIMERTINIB
     Indication: LUNG CARCINOMA CELL TYPE UNSPECIFIED RECURRENT
     Route: 048
     Dates: start: 20180514, end: 20180605
  2. KARVEA [Concomitant]
     Active Substance: IRBESARTAN
     Indication: HYPERTENSIVE HEART DISEASE
     Dosage: 300.0MG UNKNOWN
     Route: 048

REACTIONS (4)
  - Loss of consciousness [Fatal]
  - Hypotension [Fatal]
  - Malaise [Fatal]
  - Cardiac arrest [Fatal]

NARRATIVE: CASE EVENT DATE: 20180605
